FAERS Safety Report 6715126-7 (Version None)
Quarter: 2010Q2

REPORT INFORMATION
  Report Type: 
  Country: None (occurrence: None)
  Receive Date: 20100506
  Receipt Date: 20100506
  Transmission Date: 20101027
  Serious: Yes (Other)
  Sender: FDA-Public Use
  Company Number: None

PATIENT
  Sex: Female
  Weight: 52.1637 kg

DRUGS (2)
  1. WARFARIN SODIUM [Suspect]
     Indication: AORTIC VALVE REPLACEMENT
     Dosage: 2 MG + 3 MG AS DIRECTED DAILY PO 047 BEFORE 6/11/08
     Route: 048
     Dates: end: 20080611
  2. WARFARIN SODIUM [Suspect]
     Indication: MITRAL VALVE REPLACEMENT
     Dosage: 2 MG + 3 MG AS DIRECTED DAILY PO 047 BEFORE 6/11/08
     Route: 048
     Dates: end: 20080611

REACTIONS (2)
  - INTERNATIONAL NORMALISED RATIO ABNORMAL [None]
  - PRODUCT SUBSTITUTION ISSUE [None]
